FAERS Safety Report 17232398 (Version 1)
Quarter: 2020Q1

REPORT INFORMATION
  Report Type: Spontaneous
  Country: US (occurrence: US)
  Receive Date: 20200103
  Receipt Date: 20200103
  Transmission Date: 20200409
  Serious: Yes (Hospitalization, Other)
  Sender: FDA-Public Use
  Company Number: US-SA-2020SA000292

PATIENT
  Sex: Female
  Weight: 73.5 kg

DRUGS (32)
  1. ALLOPURINOL. [Concomitant]
     Active Substance: ALLOPURINOL
     Dosage: 100 MG, UNK
     Dates: start: 20140618
  2. ACYCLOVIR [ACICLOVIR] [Concomitant]
     Active Substance: ACYCLOVIR
     Dosage: 400 MG, UNK
     Dates: start: 20140106
  3. CEFTRIAXONE. [Concomitant]
     Active Substance: CEFTRIAXONE
     Dosage: 1 G, UNK
     Dates: start: 20191030, end: 20191102
  4. INSULIN LISPRO [Concomitant]
     Active Substance: INSULIN LISPRO
     Dosage: 1 UNK, UNK
     Dates: start: 20191030, end: 20191030
  5. ACETYLSALICYLIC ACID [Suspect]
     Active Substance: ASPIRIN
     Dosage: 324 MG, UNK
     Route: 065
     Dates: start: 20190808
  6. ROSUVASTIN [Concomitant]
     Active Substance: ROSUVASTATIN
     Dosage: 40 MG, UNK
     Dates: start: 20140710
  7. PYRIDOXINE [Concomitant]
     Active Substance: PYRIDOXINE
     Dosage: 50 MG, UNK
     Dates: start: 20191010
  8. PLAVIX [Suspect]
     Active Substance: CLOPIDOGREL BISULFATE
     Dosage: 75 MG, UNK
     Route: 048
     Dates: start: 20190809, end: 20190809
  9. POTASSIUM CHLORIDE. [Concomitant]
     Active Substance: POTASSIUM CHLORIDE
     Dosage: 10 UNK, UNK
     Dates: start: 20090301, end: 20191102
  10. ACETAMINOPHEN. [Concomitant]
     Active Substance: ACETAMINOPHEN
     Dosage: 500 MG, UNK
     Dates: start: 20191030, end: 20191030
  11. AZITHROMYCIN ANHYDROUS. [Concomitant]
     Active Substance: AZITHROMYCIN ANHYDROUS
     Dosage: 500 MG, UNK
     Dates: start: 20191030, end: 20191102
  12. PLAVIX [Suspect]
     Active Substance: CLOPIDOGREL BISULFATE
     Dosage: 75 MG, UNK
     Route: 048
     Dates: start: 20190829, end: 20190829
  13. FENTANYL. [Concomitant]
     Active Substance: FENTANYL
     Dosage: 50 UNK, UNK
     Dates: start: 20191030, end: 20191030
  14. ACETYLSALICYLIC ACID [Suspect]
     Active Substance: ASPIRIN
     Dosage: 100 MG, UNK
     Route: 048
     Dates: start: 20190829, end: 20190829
  15. GABAPENTIN. [Concomitant]
     Active Substance: GABAPENTIN
     Dosage: 900 MG, UNK
     Dates: start: 20110311, end: 20191102
  16. NITROGLYCERIN. [Concomitant]
     Active Substance: NITROGLYCERIN
     Dosage: 50 UNK
     Dates: start: 20191030, end: 20191030
  17. FLAXSEED OIL [LINUM USITATISSIMUM OIL] [Concomitant]
     Dosage: 1000 MG, UNK
     Dates: start: 20191010
  18. PLAVIX [Suspect]
     Active Substance: CLOPIDOGREL BISULFATE
     Dosage: 75 MG, UNK
     Route: 048
     Dates: start: 20190810, end: 20190828
  19. ACETYLSALICYLIC ACID [Suspect]
     Active Substance: ASPIRIN
     Dosage: 100 MG, UNK
     Route: 048
     Dates: start: 20190810, end: 20190828
  20. ONDANSETRON [Concomitant]
     Active Substance: ONDANSETRON
     Dosage: 2 MG, UNK
     Dates: start: 20191030, end: 20191030
  21. NYQUIL SEVERE COLD + FLU [Concomitant]
     Dosage: 2 UNK, UNK
     Dates: start: 20191023, end: 20191029
  22. METFORMIN [Concomitant]
     Active Substance: METFORMIN HYDROCHLORIDE
     Dosage: 500 MG, UNK
     Dates: start: 20181203, end: 20191102
  23. NITROGLYCERIN. [Concomitant]
     Active Substance: NITROGLYCERIN
     Dosage: 0.4 MG, UNK
     Dates: start: 20100508
  24. SODIUM CHLORIDE. [Concomitant]
     Active Substance: SODIUM CHLORIDE
     Dosage: 10 UNK, UNK
     Dates: start: 20191030, end: 20191102
  25. ACETYLSALICYLIC ACID [Suspect]
     Active Substance: ASPIRIN
     Dosage: 100 MG, UNK
     Route: 048
     Dates: start: 20190809, end: 20190809
  26. ACETYLSALICYLIC ACID [Suspect]
     Active Substance: ASPIRIN
     Dosage: 100 MG, UNK
     Route: 048
     Dates: start: 20190830, end: 20191029
  27. CARVEDILOL. [Concomitant]
     Active Substance: CARVEDILOL
     Indication: PROPHYLAXIS
     Dosage: 50 MG, UNK
     Dates: start: 20190508, end: 20191030
  28. CITALOPRAM [Concomitant]
     Active Substance: CITALOPRAM HYDROBROMIDE
     Dosage: 10 MG, UNK
     Dates: start: 20191003
  29. ALBUTEROL HFA [Concomitant]
     Active Substance: ALBUTEROL SULFATE
     Dosage: 90 MG, UNK
     Dates: start: 20150602
  30. POTASSIUM CHLORIDE. [Concomitant]
     Active Substance: POTASSIUM CHLORIDE
     Dosage: 80 UNK, UNK
     Dates: start: 20191030, end: 20191030
  31. CHOLECALCIFEROL [Concomitant]
     Active Substance: CHOLECALCIFEROL
     Dosage: 2000 UNK, UNK
     Dates: start: 20150331
  32. MUCINEX [Concomitant]
     Active Substance: GUAIFENESIN
     Dosage: 1200 MG, UNK
     Dates: start: 20191020, end: 20191029

REACTIONS (2)
  - Myocardial infarction [Recovered/Resolved]
  - Pneumonia [Recovered/Resolved]

NARRATIVE: CASE EVENT DATE: 20191030
